FAERS Safety Report 8470282-8 (Version None)
Quarter: 2012Q2

REPORT INFORMATION
  Report Type: 
  Country: None (occurrence: None)
  Receive Date: 20120627
  Receipt Date: 20120621
  Transmission Date: 20120825
  Serious: Yes (Other)
  Sender: FDA-Public Use
  Company Number: IE-US-EMD SERONO, INC.-7142475

PATIENT
  Sex: Female

DRUGS (3)
  1. REBIF [Suspect]
  2. CLACID (KLACID) [Concomitant]
     Indication: PRODUCT USED FOR UNKNOWN INDICATION
     Route: 048
     Dates: start: 20120611, end: 20120617
  3. REBIF [Suspect]
     Indication: RELAPSING-REMITTING MULTIPLE SCLEROSIS
     Route: 058
     Dates: start: 20120426

REACTIONS (7)
  - MUSCULOSKELETAL STIFFNESS [None]
  - FATIGUE [None]
  - CHILLS [None]
  - EAR INFECTION [None]
  - LOWER RESPIRATORY TRACT INFECTION [None]
  - INJECTION SITE PAIN [None]
  - BLOOD PRESSURE INCREASED [None]
